FAERS Safety Report 14527660 (Version 1)
Quarter: 2018Q1

REPORT INFORMATION
  Report Type: Spontaneous
  Country: FR (occurrence: FR)
  Receive Date: 20180213
  Receipt Date: 20180213
  Transmission Date: 20180509
  Serious: Yes (Hospitalization)
  Sender: FDA-Public Use
  Company Number: FR-TEVA-2018-FR-856113

PATIENT
  Age: 57 Year
  Sex: Male
  Weight: 86 kg

DRUGS (8)
  1. DIAMICRON 30 MG,MODIFIED RELEASE TABLET [Suspect]
     Active Substance: GLICLAZIDE
     Indication: DIABETES MELLITUS
     Dosage: 2 DOSAGE FORMS DAILY;
     Route: 048
  2. PROCORALAN 5 MG, [Concomitant]
     Dosage: 1.5 DOSAGE FORMS DAILY;
     Route: 048
  3. DETENSIEL 10 MG, [Concomitant]
     Route: 048
  4. OLODATEROL (CHLORYDRATE DE) [Concomitant]
     Active Substance: OLODATEROL HYDROCHLORIDE
     Route: 055
  5. ZESTRIL [Suspect]
     Active Substance: LISINOPRIL
     Indication: HYPERTENSION
     Route: 048
  6. KARDEGIC 75 MG, [Concomitant]
     Dosage: 1 DOSAGE FORMS DAILY;
     Route: 048
  7. METFORMIN [Suspect]
     Active Substance: METFORMIN HYDROCHLORIDE
     Indication: DIABETES MELLITUS
     Dosage: 1000 MILLIGRAM DAILY;
     Route: 065
  8. SPIRIVA [Concomitant]
     Active Substance: TIOTROPIUM BROMIDE MONOHYDRATE
     Route: 055

REACTIONS (2)
  - Acute kidney injury [Recovered/Resolved]
  - Diarrhoea [Recovered/Resolved]

NARRATIVE: CASE EVENT DATE: 20170807
